FAERS Safety Report 9879168 (Version 2)
Quarter: 2014Q1

REPORT INFORMATION
  Report Type: Spontaneous
  Country: BH (occurrence: BH)
  Receive Date: 20140206
  Receipt Date: 20140221
  Transmission Date: 20141002
  Serious: Yes (Other)
  Sender: FDA-Public Use
  Company Number: BH-SA-2014SA013067

PATIENT
  Sex: Male

DRUGS (6)
  1. RENAGEL [Suspect]
     Indication: BLOOD PARATHYROID HORMONE
     Route: 065
     Dates: start: 201302, end: 201304
  2. RENAGEL [Suspect]
     Indication: BLOOD PARATHYROID HORMONE
     Dosage: 2 CAPSULES
     Route: 065
     Dates: start: 201304
  3. RENAGEL [Suspect]
     Indication: BLOOD PARATHYROID HORMONE
     Route: 065
     Dates: start: 201302
  4. RENVELA [Suspect]
     Indication: BLOOD PARATHYROID HORMONE
     Route: 065
     Dates: start: 201309
  5. RENVELA [Suspect]
     Indication: BLOOD PARATHYROID HORMONE
     Dosage: 800 MG TWICE A DAY
     Route: 048
     Dates: start: 201311
  6. RENAGEL [Suspect]
     Indication: BLOOD PARATHYROID HORMONE
     Dates: start: 201310

REACTIONS (4)
  - Blood parathyroid hormone increased [Recovered/Resolved]
  - Blood parathyroid hormone increased [Unknown]
  - Drug ineffective for unapproved indication [Unknown]
  - Off label use [Unknown]
